FAERS Safety Report 9104790 (Version 2)
Quarter: 2013Q1

REPORT INFORMATION
  Report Type: Spontaneous
  Country: US (occurrence: US)
  Receive Date: 20130219
  Receipt Date: 20130225
  Transmission Date: 20140127
  Serious: Yes (Other)
  Sender: FDA-Public Use
  Company Number: US-RB-049949-13

PATIENT
  Age: 16 Year
  Sex: Male

DRUGS (7)
  1. MUCINEX DM MAXIMUM STRENGTH (GUAIFENESIN) [Suspect]
     Indication: INFLUENZA
     Route: 048
     Dates: start: 20130205
  2. MUCINEX DM MAXIMUM STRENGTH (GUAIFENESIN) [Suspect]
     Indication: NAUSEA
     Route: 048
     Dates: start: 20130205
  3. MUCINEX DM MAXIMUM STRENGTH (GUAIFENESIN) [Suspect]
     Indication: DIARRHOEA
     Route: 048
     Dates: start: 20130205
  4. MUCINEX DM MAXIMUM STRENGTH (GUAIFENESIN) [Suspect]
     Indication: HYPERHIDROSIS
     Route: 048
     Dates: start: 20130205
  5. MUCINEX DM MAXIMUM STRENGTH (GUAIFENESIN) [Suspect]
     Indication: DIZZINESS
     Route: 048
     Dates: start: 20130205
  6. MUCINEX DM MAXIMUM STRENGTH (DEXTROMETHORPHAN HYDROBROMIDE) [Suspect]
  7. TYLENOL [Concomitant]
     Indication: PRODUCT USED FOR UNKNOWN INDICATION

REACTIONS (4)
  - Urethral stenosis [Recovered/Resolved]
  - Dysuria [Recovered/Resolved]
  - Off label use [Recovered/Resolved]
  - Bladder pain [Recovered/Resolved]
